FAERS Safety Report 11135863 (Version 1)
Quarter: 2015Q2

REPORT INFORMATION
  Report Type: Report from Study
  Country: US (occurrence: US)
  Receive Date: 20150526
  Receipt Date: 20150526
  Transmission Date: 20150821
  Serious: No
  Sender: FDA-Public Use
  Company Number: US-MALLINCKRODT-T201501923

PATIENT
  Age: 29 Year
  Sex: Female

DRUGS (1)
  1. H.P. ACTHAR [Suspect]
     Active Substance: CORTICOTROPIN
     Indication: RELAPSING-REMITTING MULTIPLE SCLEROSIS
     Dosage: 80 UNITS, QD
     Dates: start: 20100914, end: 20100920

REACTIONS (5)
  - Headache [Unknown]
  - Erythema [Unknown]
  - Tachycardia [Unknown]
  - Hyperhidrosis [Unknown]
  - Fluid retention [Unknown]
